FAERS Safety Report 12976018 (Version 1)
Quarter: 2016Q4

REPORT INFORMATION
  Report Type: Spontaneous
  Country: US (occurrence: US)
  Receive Date: 20161126
  Receipt Date: 20161126
  Transmission Date: 20170207
  Serious: Yes (Other)
  Sender: FDA-Public Use
  Company Number: US-ASTRAZENECA-2016SF23611

PATIENT
  Age: 735 Month
  Sex: Female
  Weight: 44.1 kg

DRUGS (19)
  1. ATIVAN [Concomitant]
     Active Substance: LORAZEPAM
  2. ACYCLOVIR. [Concomitant]
     Active Substance: ACYCLOVIR
  3. LISINOPRIL. [Suspect]
     Active Substance: LISINOPRIL
     Dosage: UNKNOWN DOSE
     Route: 048
  4. TAMOXIFEN [Suspect]
     Active Substance: TAMOXIFEN
     Indication: BREAST CANCER FEMALE
     Route: 048
     Dates: start: 201603
  5. CALCIUM PLUS VITAMIN D-IRON [Concomitant]
  6. LEVOTHYROXINE. [Concomitant]
     Active Substance: LEVOTHYROXINE
  7. EMLA [Concomitant]
     Active Substance: LIDOCAINE\PRILOCAINE
  8. FULVESTRANT [Suspect]
     Active Substance: FULVESTRANT
     Indication: BREAST CANCER FEMALE
     Route: 030
     Dates: start: 201204, end: 201211
  9. MARINOL [Concomitant]
     Active Substance: DRONABINOL
  10. ONDANSETRON HCL [Concomitant]
     Active Substance: ONDANSETRON HYDROCHLORIDE
  11. PROMETHAZINE [Concomitant]
     Active Substance: PROMETHAZINE\PROMETHAZINE HYDROCHLORIDE
  12. OMEPRAZOLE. [Suspect]
     Active Substance: OMEPRAZOLE
     Route: 048
  13. IBRANCE [Suspect]
     Active Substance: PALBOCICLIB
     Route: 048
  14. AMLODIPINE [Concomitant]
     Active Substance: AMLODIPINE BESYLATE
  15. DEXAMETHASONE. [Concomitant]
     Active Substance: DEXAMETHASONE
  16. DRONABINOL. [Concomitant]
     Active Substance: DRONABINOL
  17. DEXAMETHASONE. [Concomitant]
     Active Substance: DEXAMETHASONE
  18. LORAZEPAM. [Concomitant]
     Active Substance: LORAZEPAM
  19. TRAZODONE [Concomitant]
     Active Substance: TRAZODONE HYDROCHLORIDE

REACTIONS (5)
  - Metastases to bone [Not Recovered/Not Resolved]
  - Malignant neoplasm progression [Unknown]
  - Herpes zoster [Unknown]
  - Weight decreased [Unknown]
  - Decreased appetite [Unknown]

NARRATIVE: CASE EVENT DATE: 200905
